FAERS Safety Report 19762827 (Version 2)
Quarter: 2021Q3

REPORT INFORMATION
  Report Type: Report from Study
  Country: US (occurrence: US)
  Receive Date: 20210828
  Receipt Date: 20210902
  Transmission Date: 20211014
  Serious: Yes (Other)
  Sender: FDA-Public Use
  Company Number: NVSC2021US189805

PATIENT
  Sex: Female

DRUGS (1)
  1. PIQRAY [Suspect]
     Active Substance: ALPELISIB
     Indication: BREAST CANCER
     Dosage: 300 MG, QD
     Route: 048

REACTIONS (4)
  - Oral mucosal blistering [Recovering/Resolving]
  - Renal failure [Recovering/Resolving]
  - Ill-defined disorder [Unknown]
  - Oral pain [Unknown]
